FAERS Safety Report 4546055-5 (Version None)
Quarter: 2005Q1

REPORT INFORMATION
  Report Type: 
  Country: None (occurrence: None)
  Receive Date: 20050103
  Receipt Date: 20041221
  Transmission Date: 20050727
  Serious: Yes (Hospitalization)
  Sender: FDA-Public Use
  Company Number: 2004223356US

PATIENT
  Age: 49 Year
  Sex: Male
  Weight: 79.37 kg

DRUGS (3)
  1. ALPRAZOLAM [Suspect]
     Indication: DEPRESSION
     Dosage: 0.5 MG
     Dates: start: 20010101
  2. ZYRTEC [Suspect]
     Indication: HYPERSENSITIVITY
     Dosage: ORAL
     Route: 048
     Dates: start: 20030625, end: 20030701
  3. CIMETIDINE [Concomitant]

REACTIONS (34)
  - ABDOMINAL DISCOMFORT [None]
  - ABNORMAL DREAMS [None]
  - ANXIETY [None]
  - CHEST PAIN [None]
  - CONFUSIONAL STATE [None]
  - COORDINATION ABNORMAL [None]
  - DEPRESSION [None]
  - DIARRHOEA [None]
  - DRUG ABUSER [None]
  - DRUG DEPENDENCE [None]
  - DRUG INEFFECTIVE [None]
  - DRUG TOLERANCE [None]
  - DRUG WITHDRAWAL SYNDROME [None]
  - DRY MOUTH [None]
  - DYSKINESIA [None]
  - DYSURIA [None]
  - EATING DISORDER [None]
  - EUPHORIC MOOD [None]
  - FATIGUE [None]
  - FLUID RETENTION [None]
  - GASTROOESOPHAGEAL REFLUX DISEASE [None]
  - HEADACHE [None]
  - HOMICIDAL IDEATION [None]
  - LIBIDO DECREASED [None]
  - MULTIPLE ALLERGIES [None]
  - NAUSEA [None]
  - PHARMACEUTICAL PRODUCT COMPLAINT [None]
  - SOMNOLENCE [None]
  - SUICIDAL IDEATION [None]
  - SYNCOPE [None]
  - TREMOR [None]
  - UNDERDOSE [None]
  - VISION BLURRED [None]
  - WEIGHT DECREASED [None]
